FAERS Safety Report 13360649 (Version 19)
Quarter: 2020Q1

REPORT INFORMATION
  Report Type: Report from Study
  Country: US (occurrence: US)
  Receive Date: 20170322
  Receipt Date: 20200324
  Transmission Date: 20200409
  Serious: Yes (Hospitalization, Other)
  Sender: FDA-Public Use
  Company Number: US-ACTELION-A-US2017-151298

PATIENT
  Sex: Male
  Weight: 80.27 kg

DRUGS (19)
  1. VELETRI [Suspect]
     Active Substance: EPOPROSTENOL
     Dosage: 50 NG/KG, PER MIN
     Route: 042
     Dates: start: 20110708
  2. VELETRI [Suspect]
     Active Substance: EPOPROSTENOL
     Indication: PULMONARY ARTERIAL HYPERTENSION
     Dosage: 50 NG/KG, PER MIN
     Route: 042
     Dates: start: 20110708
  3. VIAGRA [Concomitant]
     Active Substance: SILDENAFIL CITRATE
     Dosage: 100 MG, TID
  4. COUMADIN [Concomitant]
     Active Substance: WARFARIN SODIUM
     Dosage: HALF 1M G TABLET WITH A 2 MG TABLET + 5 MG TABLET ON SUN, MON,WED AND FRI
     Route: 048
  5. CARDIZEM [Concomitant]
     Active Substance: DILTIAZEM HYDROCHLORIDE
     Dosage: 180 MG, QD
     Route: 048
  6. METOPROLOL. [Concomitant]
     Active Substance: METOPROLOL
     Dosage: 50 MG, UNK
  7. TRACLEER [Suspect]
     Active Substance: BOSENTAN
     Dosage: 125 MG, BID
     Route: 048
  8. VELETRI [Suspect]
     Active Substance: EPOPROSTENOL
     Dosage: 50 NG/KG, PER MIN
     Route: 042
     Dates: start: 20110708
  9. LASIX [Concomitant]
     Active Substance: FUROSEMIDE
     Dosage: 40 MG, 1 TO 2 TABLETS QD
  10. WARFARIN [Concomitant]
     Active Substance: WARFARIN
  11. ADEMPAS [Concomitant]
     Active Substance: RIOCIGUAT
  12. DIGOXIN. [Concomitant]
     Active Substance: DIGOXIN
     Dosage: 250 MCG, QD
     Route: 048
  13. LOPERAMIDE [Concomitant]
     Active Substance: LOPERAMIDE
     Dosage: 2 MG, QD
  14. TRACLEER [Suspect]
     Active Substance: BOSENTAN
     Indication: PULMONARY ARTERIAL HYPERTENSION
     Dosage: 125 MG, BID
     Route: 048
     Dates: start: 200308
  15. POTASSIUM CHLORIDE. [Concomitant]
     Active Substance: POTASSIUM CHLORIDE
     Dosage: 20 MEQ, 2 TABLETS, TID
     Route: 048
  16. DILTIAZEM. [Concomitant]
     Active Substance: DILTIAZEM
  17. VELETRI [Suspect]
     Active Substance: EPOPROSTENOL
     Dosage: UNK
     Route: 042
  18. MULTIVITAMIN [Concomitant]
     Active Substance: VITAMINS
     Route: 048
  19. RANITIDINE. [Concomitant]
     Active Substance: RANITIDINE
     Dosage: 75 MG, TID
     Route: 048

REACTIONS (34)
  - Tricuspid valve incompetence [Unknown]
  - Pulmonary arterial hypertension [Unknown]
  - Purpura [Unknown]
  - Arthralgia [Unknown]
  - Catheter site infection [Recovered/Resolved]
  - Pleural effusion [Recovered/Resolved]
  - Oedema peripheral [Unknown]
  - Dyspnoea [Unknown]
  - Abdominal distension [Unknown]
  - Dyspnoea exertional [Unknown]
  - Fluid retention [Unknown]
  - Condition aggravated [Unknown]
  - Ligament sprain [Unknown]
  - Abdominal cavity drainage [Unknown]
  - Muscle spasms [Unknown]
  - Tricuspid valve replacement [Unknown]
  - Thrombosis in device [Recovered/Resolved]
  - Pain in jaw [Unknown]
  - Oedema [Unknown]
  - International normalised ratio fluctuation [Unknown]
  - Flushing [Unknown]
  - Diarrhoea [Not Recovered/Not Resolved]
  - Rash [Unknown]
  - Pericardial effusion [Recovered/Resolved]
  - Asthenia [Unknown]
  - Breath sounds abnormal [Not Recovered/Not Resolved]
  - Ascites [Unknown]
  - Catheter management [Recovered/Resolved]
  - Catheter site pruritus [Recovered/Resolved]
  - Device dislocation [Unknown]
  - Catheter site erythema [Recovered/Resolved]
  - Weight increased [Unknown]
  - Rash erythematous [Unknown]
  - Erythema [Unknown]
